FAERS Safety Report 6803243-2 (Version None)
Quarter: 2010Q2

REPORT INFORMATION
  Report Type: 
  Country: None (occurrence: None)
  Receive Date: 20100628
  Receipt Date: 20100622
  Transmission Date: 20101027
  Serious: Yes (Other)
  Sender: FDA-Public Use
  Company Number: D0068063A

PATIENT
  Age: 50 Year

DRUGS (1)
  1. IMIGRAN NASAL SPRAY [Suspect]
     Route: 045

REACTIONS (3)
  - DRUG DEPENDENCE [None]
  - RHINITIS [None]
  - SNEEZING [None]
